FAERS Safety Report 9764618 (Version 2)
Quarter: 2014Q1

REPORT INFORMATION
  Report Type: Report from Study
  Country: JP (occurrence: JP)
  Receive Date: 20131217
  Receipt Date: 20140312
  Transmission Date: 20141002
  Serious: Yes (Hospitalization)
  Sender: FDA-Public Use
  Company Number: JP-JNJFOC-20131207899

PATIENT
  Age: 72 Year
  Sex: Female
  Weight: 48 kg

DRUGS (12)
  1. SIMPONI [Suspect]
     Indication: RHEUMATOID ARTHRITIS
     Route: 058
     Dates: start: 20130412, end: 20130412
  2. SIMPONI [Suspect]
     Indication: RHEUMATOID ARTHRITIS
     Route: 058
     Dates: start: 20130510, end: 20130510
  3. SIMPONI [Suspect]
     Indication: RHEUMATOID ARTHRITIS
     Route: 058
     Dates: start: 20130607, end: 20130607
  4. SIMPONI [Suspect]
     Indication: RHEUMATOID ARTHRITIS
     Route: 058
     Dates: start: 20130702, end: 20130702
  5. SIMPONI [Suspect]
     Indication: RHEUMATOID ARTHRITIS
     Route: 058
     Dates: start: 20130802, end: 20130802
  6. RHEUMATREX [Concomitant]
     Indication: RHEUMATOID ARTHRITIS
     Route: 048
     Dates: end: 20130812
  7. PREDONINE [Concomitant]
     Indication: RHEUMATOID ARTHRITIS
     Route: 048
  8. CELECOX [Concomitant]
     Indication: RHEUMATOID ARTHRITIS
     Route: 048
     Dates: end: 20130816
  9. FOLIAMIN [Concomitant]
     Indication: PROPHYLAXIS
     Route: 065
  10. MUCOSTA [Concomitant]
     Indication: PROPHYLAXIS
     Route: 065
  11. EXCELASE [Concomitant]
     Indication: GASTRITIS
     Route: 048
  12. PURSENNID [Concomitant]
     Indication: CONSTIPATION
     Route: 048

REACTIONS (2)
  - Pyelonephritis acute [Recovered/Resolved]
  - Pneumocystis jirovecii pneumonia [Recovered/Resolved]
